FAERS Safety Report 6565929-7 (Version None)
Quarter: 2010Q1

REPORT INFORMATION
  Report Type: 
  Country: None (occurrence: None)
  Receive Date: 20100129
  Receipt Date: 20100129
  Transmission Date: 20100710
  Serious: Yes (Other)
  Sender: FDA-Public Use
  Company Number: None

PATIENT
  Age: 30 Year
  Sex: Female
  Weight: 58.9676 kg

DRUGS (1)
  1. MIRENA [Suspect]
     Indication: CONTRACEPTION
     Dosage: ONLY DOSE AMT AVAILABLE 5 YEARS INTRA-UTERINE
     Route: 015
     Dates: start: 20090701, end: 20090930

REACTIONS (4)
  - BACTERIAL INFECTION [None]
  - DRUG HYPERSENSITIVITY [None]
  - HAEMORRHAGE [None]
  - SECRETION DISCHARGE [None]
